FAERS Safety Report 26004742 (Version 1)
Quarter: 2025Q4

REPORT INFORMATION
  Report Type: Spontaneous
  Country: BR (occurrence: BR)
  Receive Date: 20251106
  Receipt Date: 20251106
  Transmission Date: 20260118
  Serious: Yes (Disabling, Other)
  Sender: ACCORD
  Company Number: BR-MLMSERVICE-20251020-PI684321-00218-1

PATIENT
  Age: 18 Year
  Sex: Male

DRUGS (1)
  1. METHOTREXATE [Suspect]
     Active Substance: METHOTREXATE
     Indication: Acute lymphocytic leukaemia (in remission)
     Dosage: SIXTH CYCLE OF THE CONSOLIDATION; HIGH DOSES
     Dates: start: 201810

REACTIONS (9)
  - Febrile neutropenia [Recovering/Resolving]
  - Endophthalmitis [Recovering/Resolving]
  - Fusarium infection [Recovering/Resolving]
  - Escherichia infection [Unknown]
  - Retinal haemorrhage [Unknown]
  - Lung consolidation [Recovering/Resolving]
  - Pulmonary mass [Recovering/Resolving]
  - Haematological infection [Unknown]
  - Blindness [Unknown]
